FAERS Safety Report 25425516 (Version 2)
Quarter: 2025Q2

REPORT INFORMATION
  Report Type: Report from Study
  Country: US (occurrence: US)
  Receive Date: 20250611
  Receipt Date: 20250619
  Transmission Date: 20250716
  Serious: Yes (Hospitalization, Other)
  Sender: ABBVIE
  Company Number: US-ABBVIE-6316408

PATIENT
  Age: 73 Year
  Sex: Female

DRUGS (1)
  1. CREON [Suspect]
     Active Substance: PANCRELIPASE AMYLASE\PANCRELIPASE LIPASE\PANCRELIPASE PROTEASE
     Indication: Dyspepsia
     Route: 048

REACTIONS (12)
  - Systemic lupus erythematosus [Unknown]
  - Cardiac disorder [Unknown]
  - Hypophagia [Unknown]
  - Illness [Unknown]
  - Knee arthroplasty [Recovering/Resolving]
  - Chronic kidney disease [Unknown]
  - Product odour abnormal [Not Recovered/Not Resolved]
  - Dehydration [Unknown]
  - Weight decreased [Unknown]
  - COVID-19 [Recovering/Resolving]
  - Hospitalisation [Unknown]
  - Gait disturbance [Unknown]

NARRATIVE: CASE EVENT DATE: 20170101
